FAERS Safety Report 25085766 (Version 1)
Quarter: 2025Q1

REPORT INFORMATION
  Report Type: Spontaneous
  Country: US (occurrence: US)
  Receive Date: 20250317
  Receipt Date: 20250317
  Transmission Date: 20250409
  Serious: Yes (Other)
  Sender: DR REDDYS
  Company Number: US-DRL-USA-USA/2025/03/003726

PATIENT
  Age: 38 Year
  Sex: Male

DRUGS (6)
  1. APREMILAST [Suspect]
     Active Substance: APREMILAST
     Indication: Behcet^s syndrome
     Dosage: 30 MG TWICE DAILY
  2. COLCHICINE [Suspect]
     Active Substance: COLCHICINE
     Indication: Behcet^s syndrome
  3. COLCHICINE [Suspect]
     Active Substance: COLCHICINE
     Dosage: 0.6 MG DAILY
  4. ADALIMUMAB [Suspect]
     Active Substance: ADALIMUMAB
     Indication: Behcet^s syndrome
     Dosage: 40 MG WEEKLY
  5. RITUXIMAB [Suspect]
     Active Substance: RITUXIMAB
     Indication: Behcet^s syndrome
  6. PREDNISONE [Concomitant]
     Active Substance: PREDNISONE
     Indication: Behcet^s syndrome

REACTIONS (3)
  - Behcet^s syndrome [Unknown]
  - COVID-19 [Unknown]
  - Drug ineffective for unapproved indication [Unknown]
